FAERS Safety Report 14378957 (Version 9)
Quarter: 2019Q2

REPORT INFORMATION
  Report Type: Report from Study
  Country: BR (occurrence: BR)
  Receive Date: 20180112
  Receipt Date: 20190423
  Transmission Date: 20190711
  Serious: Yes (Hospitalization, Other)
  Sender: FDA-Public Use
  Company Number: BR-TAKEDA-2018TUS000453

PATIENT
  Sex: Female

DRUGS (1)
  1. VEDOLIZUMAB [Suspect]
     Active Substance: VEDOLIZUMAB
     Indication: CROHN^S DISEASE
     Dosage: 300 MILLIGRAM
     Route: 042
     Dates: start: 20170928

REACTIONS (8)
  - Abscess [Unknown]
  - Vomiting [Unknown]
  - Pyrexia [Unknown]
  - Off label use [Unknown]
  - Blood pressure decreased [Unknown]
  - Dizziness [Unknown]
  - Abdominal pain [Unknown]
  - Fistula [Not Recovered/Not Resolved]
